FAERS Safety Report 9411657 (Version 1)
Quarter: 2013Q3

REPORT INFORMATION
  Report Type: Spontaneous
  Country: US (occurrence: None)
  Receive Date: 20130719
  Receipt Date: 20130719
  Transmission Date: 20140515
  Serious: Yes (Hospitalization)
  Sender: FDA-Public Use
  Company Number: None

PATIENT
  Age: 59 Year
  Sex: Female
  Weight: 55.9 kg

DRUGS (2)
  1. GAMMAGARD [Suspect]
     Route: 058
     Dates: start: 20130319, end: 20130718
  2. GAMMAGARD [Suspect]

REACTIONS (3)
  - Renal pain [None]
  - Flank pain [None]
  - Blood urine present [None]
